FAERS Safety Report 6500422-9 (Version None)
Quarter: 2009Q4

REPORT INFORMATION
  Report Type: 
  Country: None (occurrence: None)
  Receive Date: 20091216
  Receipt Date: 20091209
  Transmission Date: 20100525
  Serious: Yes (Hospitalization, Other)
  Sender: FDA-Public Use
  Company Number: PHHO2008DE07135

PATIENT
  Sex: Male
  Weight: 89 kg

DRUGS (10)
  1. NEORAL [Suspect]
     Indication: RENAL TRANSPLANT
     Dosage: UNK
     Route: 048
     Dates: start: 20080514
  2. NEORAL [Suspect]
     Dosage: UNK
     Route: 048
     Dates: start: 20080719
  3. NO TREATMENT RECEIVED NOMED [Suspect]
     Indication: RENAL TRANSPLANT
  4. MYFORTIC [Concomitant]
     Indication: RENAL TRANSPLANT
     Dosage: 720 UNK, UNK
     Route: 048
     Dates: start: 20080514
  5. DECORTIN [Concomitant]
     Indication: IMMUNOSUPPRESSION
     Dosage: 25 MG, UNK
     Route: 048
     Dates: start: 20080514
  6. METOPROLOL [Concomitant]
  7. RAMIPRIL [Concomitant]
  8. COTRIM [Concomitant]
  9. OMEP [Concomitant]
  10. AMPHOTERICIN B [Concomitant]

REACTIONS (7)
  - ACCIDENTAL OVERDOSE [None]
  - BLOOD CREATININE INCREASED [None]
  - CALCULUS URINARY [None]
  - HYDRONEPHROSIS [None]
  - LYMPHOCELE [None]
  - RENAL FAILURE [None]
  - URINARY TRACT OBSTRUCTION [None]
